FAERS Safety Report 25843267 (Version 1)
Quarter: 2025Q3

REPORT INFORMATION
  Report Type: Spontaneous
  Country: US (occurrence: US)
  Receive Date: 20250924
  Receipt Date: 20250924
  Transmission Date: 20251021
  Serious: No
  Sender: SANOFI AVENTIS
  Company Number: US-SANOFI-02659777

PATIENT
  Sex: Female

DRUGS (1)
  1. DUPIXENT [Suspect]
     Active Substance: DUPILUMAB
     Indication: Chronic spontaneous urticaria
     Dosage: 300 MG QOW
     Route: 065

REACTIONS (4)
  - Skin swelling [Unknown]
  - Skin oedema [Unknown]
  - Skin ulcer [Unknown]
  - Skin disorder [Unknown]
